FAERS Safety Report 24719613 (Version 3)
Quarter: 2024Q4

REPORT INFORMATION
  Report Type: Report from Study
  Country: JP (occurrence: JP)
  Receive Date: 20241211
  Receipt Date: 20241229
  Transmission Date: 20250115
  Serious: Yes (Hospitalization, Other)
  Sender: NOVARTIS
  Company Number: JP-002147023-NVSJ2024JP014464

PATIENT
  Age: 24 Year
  Sex: Female
  Weight: 56.2 kg

DRUGS (3)
  1. TABRECTA [Suspect]
     Active Substance: CAPMATINIB
     Indication: Gastric cancer
     Dosage: 400 MG, BID
     Route: 048
     Dates: start: 20231026, end: 20231028
  2. TABRECTA [Suspect]
     Active Substance: CAPMATINIB
     Dosage: 200 MG, BID
     Route: 048
     Dates: start: 20231108, end: 20240208
  3. TABRECTA [Suspect]
     Active Substance: CAPMATINIB
     Dosage: 200 MG, BID
     Route: 048
     Dates: start: 20240213, end: 20240315

REACTIONS (6)
  - Malaise [Recovered/Resolved]
  - Decreased appetite [Recovered/Resolved]
  - Concomitant disease aggravated [Recovered/Resolved]
  - Vomiting [Recovered/Resolved]
  - Diarrhoea [Unknown]
  - Hypokalaemia [Recovered/Resolved]

NARRATIVE: CASE EVENT DATE: 20231030
